FAERS Safety Report 9204673 (Version 1)
Quarter: 2013Q1

REPORT INFORMATION
  Report Type: Spontaneous
  Country: US (occurrence: None)
  Receive Date: 20130329
  Receipt Date: 20130329
  Transmission Date: 20140127
  Serious: Yes (Hospitalization)
  Sender: FDA-Public Use
  Company Number: DSU-2013-00238

PATIENT
  Age: 52 Year
  Sex: Male
  Weight: 102.51 kg

DRUGS (11)
  1. AZOR (OLMESARTAN MEDOXOMIL, AMLODIPINE BESILATE) (TABLET) (OLMESARTAN MEDOXOMIL, AMLODIPINE BESILATE) [Suspect]
     Indication: HYPERTENSION
     Route: 048
     Dates: start: 20101130
  2. HYDRALAZINE [Suspect]
     Indication: PRODUCT USED FOR UNKNOWN INDICATION
  3. AMLODIPINE (AMLODIPINE) [Suspect]
     Indication: PRODUCT USED FOR UNKNOWN INDICATION
  4. CHLORTHALIDONE [Suspect]
     Indication: PRODUCT USED FOR UNKNOWN INDICATION
  5. CLONIDINE [Suspect]
     Indication: BLOOD PRESSURE SYSTOLIC
     Dosage: QID FOR SYSTOLIC
  6. CATAPRESS (CLONIDINE) (TRANSDERMAL PATCH) [Concomitant]
  7. LASIX (FUROSEMIDE) [Concomitant]
  8. LEVOTHYROXINE (LEVOTHYROXINE) [Concomitant]
  9. LUNESTA (ESZOPICLONE) [Concomitant]
  10. RESTORIL (CHLORMEZANONE) [Concomitant]
  11. VIAGRA (SILDENAFIL) [Concomitant]

REACTIONS (6)
  - Accident at work [None]
  - Hypoaesthesia [None]
  - Blood pressure increased [None]
  - Headache [None]
  - Pain [None]
  - Back injury [None]
